FAERS Safety Report 9405699 (Version 1)
Quarter: 2013Q3

REPORT INFORMATION
  Report Type: Other
  Country: US (occurrence: US)
  Receive Date: 20130717
  Receipt Date: 20130717
  Transmission Date: 20140515
  Serious: Yes (Death)
  Sender: FDA-Public Use
  Company Number: US-LEHIGH_VALLEY-USA-POI0580201300002

PATIENT
  Sex: Female

DRUGS (5)
  1. OXYCODONE HCL CAPSULES [Suspect]
  2. DEXTROMETHORPHAN [Suspect]
  3. DIPHENHYDRAMINE [Suspect]
  4. BROMPHENIRAMINE [Suspect]
  5. GUAIFENESIN [Suspect]

REACTIONS (2)
  - Toxicity to various agents [None]
  - Toxicity to various agents [None]
